FAERS Safety Report 9502753 (Version 1)
Quarter: 2013Q1

REPORT INFORMATION
  Report Type: Spontaneous
  Country: US (occurrence: None)
  Receive Date: 20130226
  Receipt Date: 20130226
  Transmission Date: 20140127
  Serious: Yes (Hospitalization)
  Sender: FDA-Public Use
  Company Number: PHEH2012US023948

PATIENT
  Age: 25 Year
  Sex: Female

DRUGS (2)
  1. TOBI [Suspect]
     Indication: CYSTIC FIBROSIS
  2. TOBRAMYCIN ( TOBRAMYCIN) [Concomitant]

REACTIONS (1)
  - Cystic fibrosis [None]
